FAERS Safety Report 5465902-6 (Version None)
Quarter: 2007Q3

REPORT INFORMATION
  Report Type: 
  Country: None (occurrence: None)
  Receive Date: 20070924
  Receipt Date: 20070918
  Transmission Date: 20080115
  Serious: Yes (Death, Hospitalization)
  Sender: FDA-Public Use
  Company Number: US-SANOFI-SYNTHELABO-F03200700149

PATIENT
  Sex: Male

DRUGS (13)
  1. MULTI-VITAMIN [Concomitant]
     Dosage: UNK
     Route: 048
     Dates: start: 20070215, end: 20070730
  2. LIPITOR [Concomitant]
     Dosage: UNK
     Route: 048
     Dates: start: 19940615, end: 20070730
  3. DIGITEK [Concomitant]
     Dosage: UNK
     Route: 048
     Dates: start: 20070215, end: 20070730
  4. PEPCID [Concomitant]
     Dosage: UNK
     Route: 048
     Dates: start: 20070215, end: 20070730
  5. CARDIZEM [Concomitant]
     Dosage: UNK
     Route: 048
     Dates: start: 20061115, end: 20070730
  6. COZAAR [Concomitant]
     Dosage: UNK
     Route: 048
     Dates: start: 19920615, end: 20070730
  7. COUMADIN [Concomitant]
     Dosage: UNK
     Route: 048
     Dates: start: 20070215, end: 20070730
  8. LEUCOVORIN [Suspect]
     Indication: COLORECTAL CANCER METASTATIC
     Route: 042
     Dates: start: 20070709, end: 20070709
  9. FLUOROURACIL [Suspect]
     Indication: COLORECTAL CANCER METASTATIC
     Dosage: 606 MG BOLUS; 3636 MG EVERY 2 WEEKS
     Route: 042
     Dates: start: 20070711, end: 20070711
  10. BEVACIZUMAB [Suspect]
     Indication: COLORECTAL CANCER METASTATIC
     Route: 042
     Dates: start: 20070709, end: 20070709
  11. ELOXATIN [Suspect]
     Indication: COLORECTAL CANCER METASTATIC
     Dosage: 65 MG/M2 (131.3 MG) EVERY 2 WEEKS
     Route: 042
     Dates: start: 20070709, end: 20070709
  12. MEGACE [Concomitant]
     Dosage: UNK
     Route: 048
     Dates: start: 20070417, end: 20070730
  13. NYSTATIN [Concomitant]
     Dosage: UNK
     Route: 065
     Dates: start: 20070720, end: 20070730

REACTIONS (3)
  - DEHYDRATION [None]
  - PARANEOPLASTIC SYNDROME [None]
  - SEPSIS [None]
